FAERS Safety Report 9971373 (Version 3)
Quarter: 2014Q3

REPORT INFORMATION
  Report Type: Spontaneous
  Country: IT (occurrence: IT)
  Receive Date: 20140306
  Receipt Date: 20140724
  Transmission Date: 20150326
  Serious: Yes (Death, Hospitalization, Other)
  Sender: FDA-Public Use
  Company Number: IT-UCBSA-113532

PATIENT
  Age: 71 Year
  Sex: Male

DRUGS (4)
  1. TRIATEC [Concomitant]
     Active Substance: RAMIPRIL
     Dosage: 5MG ( UNKNOWN FREQUENCY)  DIVISIBLE TABLETS
     Route: 048
     Dates: start: 20131209, end: 20140129
  2. KEPPRA [Suspect]
     Active Substance: LEVETIRACETAM
     Indication: EPILEPSY
     Dosage: 1000 MG, ONCE DAILY (QD)
     Route: 048
     Dates: start: 20131209, end: 20140128
  3. PANTOPRAZOLE [Concomitant]
     Active Substance: PANTOPRAZOLE SODIUM
     Dosage: 20 MG, UNKNOWN FREQUENCY
     Route: 048
     Dates: start: 20131209, end: 20140130
  4. DECADRON [Concomitant]
     Active Substance: DEXAMETHASONE
     Dosage: 8 MG, UNKNOWN FREQUENCY (4MG/1ML)
     Route: 030
     Dates: start: 20131209, end: 20140130

REACTIONS (6)
  - Coma [Fatal]
  - Urinary incontinence [Fatal]
  - Thrombocytopenia [Fatal]
  - Dysphagia [Fatal]
  - Hemiplegia [Fatal]
  - Cerebral haemorrhage [Fatal]

NARRATIVE: CASE EVENT DATE: 20140127
